FAERS Safety Report 9890422 (Version 1)
Quarter: 2014Q1

REPORT INFORMATION
  Report Type: Spontaneous
  Country: US (occurrence: None)
  Receive Date: 20140210
  Receipt Date: 20140210
  Transmission Date: 20141002
  Serious: Yes (Death)
  Sender: FDA-Public Use
  Company Number: None

PATIENT
  Age: 90 Year
  Sex: Male

DRUGS (1)
  1. GLEEVEC, 400 MG, NOVARTIS [Suspect]
     Indication: CHRONIC MYELOID LEUKAEMIA
     Dosage: 11/08/2014-01/08/2014
     Route: 048

REACTIONS (1)
  - Disease progression [None]
